FAERS Safety Report 4622100-3 (Version None)
Quarter: 2005Q1

REPORT INFORMATION
  Report Type: 
  Country: None (occurrence: None)
  Receive Date: 20050329
  Receipt Date: 20050314
  Transmission Date: 20050727
  Serious: Yes (Death)
  Sender: FDA-Public Use
  Company Number: 2005S1001202

PATIENT
  Age: 39 Year
  Sex: Male

DRUGS (9)
  1. CLOZAPINE [Suspect]
     Indication: SCHIZOPHRENIA
     Dosage: 300 MG; QAM; PO
     Route: 048
     Dates: start: 20020101
  2. CLOZAPINE [Suspect]
     Dosage: 500 MG; HS; PO
     Route: 048
     Dates: start: 20020101
  3. OMEPRAZOLE [Concomitant]
  4. RANITIDINE HYDROCHLORIDE [Concomitant]
  5. DOCUSATE SODIUM [Concomitant]
  6. FLUOXETINE HCL [Concomitant]
  7. OLANZAPINE [Concomitant]
  8. RISPERIDONE [Concomitant]
  9. BENZATROPINE MESILATE [Concomitant]

REACTIONS (1)
  - DEATH [None]
